FAERS Safety Report 4731848-1 (Version None)
Quarter: 2005Q3

REPORT INFORMATION
  Report Type: 
  Country: None (occurrence: None)
  Receive Date: 20050725
  Receipt Date: 20050201
  Transmission Date: 20060218
  Serious: Yes (Hospitalization)
  Sender: FDA-Public Use
  Company Number: WAES 0502USA00298

PATIENT
  Age: 53 Year
  Sex: Female
  Weight: 88.905 kg

DRUGS (1)
  1. VIOXX [Suspect]
     Dosage: UNK/UNK/PO
     Route: 048

REACTIONS (4)
  - GASTRITIS [None]
  - GASTROINTESTINAL ARTERIOVENOUS MALFORMATION [None]
  - HAEMORRHOIDS [None]
  - PEPTIC ULCER [None]
